FAERS Safety Report 8607579-4 (Version None)
Quarter: 2012Q3

REPORT INFORMATION
  Report Type: 
  Country: None (occurrence: None)
  Receive Date: 20120821
  Receipt Date: 20120813
  Transmission Date: 20120928
  Serious: Yes (Hospitalization)
  Sender: FDA-Public Use
  Company Number: US-CELGENEUS-163-21880-12081559

PATIENT
  Sex: Male
  Weight: 74.91 kg

DRUGS (12)
  1. CATAPRES-TTS-1 [Concomitant]
     Dosage: .2 MILLIGRAM
     Route: 065
  2. COUMADIN [Concomitant]
     Indication: PLATELET AGGREGATION ABNORMAL
     Dosage: 2 MILLIGRAM
     Route: 065
  3. ALLOPURINOL [Concomitant]
     Indication: SUPPLEMENTATION THERAPY
     Dosage: 100 MILLIGRAM
     Route: 065
  4. LASIX [Concomitant]
     Dosage: 40 MILLIGRAM
     Route: 065
  5. REVLIMID [Suspect]
     Indication: MULTIPLE MYELOMA
     Dosage: 25 MILLIGRAM
     Route: 048
     Dates: start: 20120315
  6. METOPROLOL TARTRATE [Concomitant]
     Indication: HYPERTENSION
     Dosage: 50 MILLIGRAM
     Route: 065
  7. LUNESTA [Concomitant]
     Indication: INSOMNIA
     Dosage: 3 MILLIGRAM
     Route: 065
  8. PRILOSEC [Concomitant]
     Dosage: 20 MILLIGRAM
     Route: 065
  9. NORVASC [Concomitant]
     Dosage: 10 MILLIGRAM
     Route: 065
  10. VICODIN [Concomitant]
     Indication: PAIN
     Dosage: 5/500 MG
     Route: 065
  11. LIDO [Concomitant]
     Indication: PAIN
     Dosage: 5 PERCENT
     Route: 065
  12. NEURONTIN [Concomitant]
     Indication: SUPPLEMENTATION THERAPY
     Dosage: 300 MILLIGRAM
     Route: 065

REACTIONS (1)
  - UNEVALUABLE EVENT [None]
